FAERS Safety Report 5401851-7 (Version None)
Quarter: 2007Q3

REPORT INFORMATION
  Report Type: 
  Country: None (occurrence: None)
  Receive Date: 20070731
  Receipt Date: 20070726
  Transmission Date: 20080115
  Serious: Yes (Disabling, Other)
  Sender: FDA-Public Use
  Company Number: US-BOEHRINGER INGELHEIM PHARMACEUTICALS, INC.-2007-BP-03386BP

PATIENT
  Age: 65 Year
  Sex: Male

DRUGS (8)
  1. FLOMAX [Suspect]
     Indication: BENIGN PROSTATIC HYPERPLASIA
     Dates: start: 20020101
  2. ISORDIL [Concomitant]
  3. PRILOSEC [Concomitant]
  4. REGLAN [Concomitant]
  5. MEVACOR [Concomitant]
  6. ATENOLOL [Concomitant]
  7. CITALOPRAM HYDROBROMIDE [Concomitant]
  8. MAXZIDE [Concomitant]

REACTIONS (5)
  - ANISOMETROPIA [None]
  - ASTIGMATISM [None]
  - EYE OPERATION COMPLICATION [None]
  - SKIN CANCER [None]
  - WOUND DEHISCENCE [None]
